FAERS Safety Report 6144531-5 (Version None)
Quarter: 2009Q2

REPORT INFORMATION
  Report Type: 
  Country: None (occurrence: None)
  Receive Date: 20090406
  Receipt Date: 20090325
  Transmission Date: 20091009
  Serious: Yes (Hospitalization)
  Sender: FDA-Public Use
  Company Number: US-PFIZER INC-2009187990

PATIENT
  Age: 55 Year
  Sex: Female

DRUGS (3)
  1. ZYVOX [Suspect]
     Indication: PERICARDITIS
     Dosage: UNK
     Dates: start: 20070401, end: 20070501
  2. COLCHICINE [Suspect]
     Indication: PERICARDITIS
     Dosage: 0.6 MG
     Route: 048
     Dates: start: 20060501, end: 20070401
  3. COLCHICINE [Suspect]
     Dosage: 0.6 MG, DAILY
     Route: 048
     Dates: start: 20081222

REACTIONS (15)
  - ABDOMINAL DISCOMFORT [None]
  - ASTHENIA [None]
  - BONE MARROW FAILURE [None]
  - CHEST PAIN [None]
  - DIPLOPIA [None]
  - DRUG INTERACTION [None]
  - DYSPNOEA [None]
  - EYELID PTOSIS [None]
  - HAEMOGLOBIN DECREASED [None]
  - MUSCULAR WEAKNESS [None]
  - MYASTHENIA GRAVIS [None]
  - OCULAR MYASTHENIA [None]
  - PHOTOPHOBIA [None]
  - VISION BLURRED [None]
  - VISUAL IMPAIRMENT [None]
